FAERS Safety Report 5814116-6 (Version None)
Quarter: 2008Q3

REPORT INFORMATION
  Report Type: 
  Country: None (occurrence: None)
  Receive Date: 20080717
  Receipt Date: 20080707
  Transmission Date: 20090109
  Serious: Yes (Hospitalization)
  Sender: FDA-Public Use
  Company Number: FR-ABBOTT-08P-056-0461842-00

PATIENT
  Sex: Female

DRUGS (4)
  1. HUMIRA [Suspect]
     Indication: RHEUMATOID ARTHRITIS
     Route: 058
     Dates: start: 20071220, end: 20080516
  2. METHOTREXATE [Concomitant]
     Indication: RHEUMATOID ARTHRITIS
     Route: 048
  3. METHOTREXATE [Concomitant]
     Route: 048
     Dates: start: 20071101
  4. UNSPECIFIED ANTI-INFLAMMATORY TREATMENTS [Concomitant]
     Indication: RHEUMATOID ARTHRITIS

REACTIONS (7)
  - ECZEMA [None]
  - PSORIASIS [None]
  - PUSTULAR PSORIASIS [None]
  - RASH ERYTHEMATOUS [None]
  - RASH PUSTULAR [None]
  - TOXIC SKIN ERUPTION [None]
  - VAGINAL DISCHARGE [None]
